FAERS Safety Report 5947402-X (Version None)
Quarter: 2008Q4

REPORT INFORMATION
  Report Type: 
  Country: None (occurrence: None)
  Receive Date: 20081110
  Receipt Date: 20081029
  Transmission Date: 20090506
  Serious: Yes (Other)
  Sender: FDA-Public Use
  Company Number: DE-PFIZER INC-2008092012

PATIENT
  Age: 14 Year
  Sex: Male
  Weight: 64 kg

DRUGS (9)
  1. VORICONAZOLE [Suspect]
     Indication: FUNGUS SEROLOGY TEST
     Route: 042
  2. CHLORAMPHENICOL [Interacting]
     Indication: CNS VENTRICULITIS
     Route: 042
  3. CHLORAMPHENICOL [Interacting]
     Indication: EPENDYMITIS
  4. CEFTRIAXONE [Concomitant]
     Indication: CNS VENTRICULITIS
  5. CASPOFUNGIN [Concomitant]
     Indication: ASPERGILLOSIS
     Route: 042
  6. AMLODIPINE [Concomitant]
  7. ATENOLOL [Concomitant]
  8. VANCOMYCIN [Concomitant]
  9. MICONAZOLE [Concomitant]

REACTIONS (2)
  - DRUG INTERACTION [None]
  - POTENTIATING DRUG INTERACTION [None]
